FAERS Safety Report 6096380-4 (Version None)
Quarter: 2009Q1

REPORT INFORMATION
  Report Type: 
  Country: None (occurrence: None)
  Receive Date: 20090225
  Receipt Date: 20090225
  Transmission Date: 20090719
  Serious: Yes (Other)
  Sender: FDA-Public Use
  Company Number: None

PATIENT
  Sex: Female
  Weight: 75.7507 kg

DRUGS (1)
  1. LAMOTRIGINE [Suspect]
     Dosage: 100 MG ONE TAB BID ORAL
     Route: 048

REACTIONS (1)
  - PRURITUS [None]
